FAERS Safety Report 12401226 (Version 1)
Quarter: 2016Q2

REPORT INFORMATION
  Report Type: Spontaneous
  Country: US (occurrence: None)
  Receive Date: 20160524
  Receipt Date: 20160524
  Transmission Date: 20160815
  Serious: Yes (Hospitalization)
  Sender: FDA-Public Use
  Company Number: None

PATIENT
  Age: 61 Year
  Sex: Male

DRUGS (1)
  1. AMLODIPINE [Suspect]
     Active Substance: AMLODIPINE BESYLATE
     Indication: HYPERTENSION
     Route: 048
     Dates: start: 20160115, end: 20160205

REACTIONS (9)
  - Dyspnoea [None]
  - Lip swelling [None]
  - Upper airway obstruction [None]
  - Eyelid oedema [None]
  - Swelling face [None]
  - Wheezing [None]
  - Drug hypersensitivity [None]
  - Dysphonia [None]
  - Angioedema [None]

NARRATIVE: CASE EVENT DATE: 20160205
